FAERS Safety Report 4350527-6 (Version None)
Quarter: 2004Q2

REPORT INFORMATION
  Report Type: 
  Country: None (occurrence: None)
  Receive Date: 20040429
  Receipt Date: 20040429
  Transmission Date: 20050107
  Serious: Yes (Other)
  Sender: FDA-Public Use
  Company Number: None

PATIENT
  Age: 88 Year
  Sex: Female

DRUGS (10)
  1. NAMENDA [Suspect]
     Indication: DEMENTIA
     Dosage: 10 MG BID ORAL
     Route: 048
     Dates: start: 20040101, end: 20040303
  2. EFFEXOR [Concomitant]
  3. ARICEPT [Concomitant]
  4. VITAMIN E [Concomitant]
  5. EVISTA [Concomitant]
  6. DETROL [Concomitant]
  7. ASPIRIN [Concomitant]
  8. MULTI-VITAMIN [Concomitant]
  9. CALCIUM [Concomitant]
  10. ZYPREXA [Concomitant]

REACTIONS (4)
  - AMNESIA [None]
  - LOSS OF CONSCIOUSNESS [None]
  - MUSCLE RIGIDITY [None]
  - URINARY INCONTINENCE [None]
